FAERS Safety Report 15021183 (Version 1)
Quarter: 2018Q2

REPORT INFORMATION
  Report Type: Spontaneous
  Country: US (occurrence: US)
  Receive Date: 20180618
  Receipt Date: 20180618
  Transmission Date: 20180711
  Serious: Yes (Death, Hospitalization, Other)
  Sender: FDA-Public Use
  Company Number: US-ALEMBIC PHARMACUETICALS LIMITED-2018SCAL000430

PATIENT

DRUGS (2)
  1. METRONIDAZOLE. [Suspect]
     Active Substance: METRONIDAZOLE
     Indication: SEPSIS
     Dosage: UNK (THREE WEEKS COURSE)
     Route: 042
  2. CEFTRIAXONE. [Concomitant]
     Active Substance: CEFTRIAXONE
     Indication: SEPSIS
     Dosage: UNK
     Route: 042

REACTIONS (10)
  - Multiple organ dysfunction syndrome [Fatal]
  - Septic shock [Unknown]
  - Neurotoxicity [Unknown]
  - Respiratory failure [Unknown]
  - Tinnitus [Unknown]
  - Dysmetria [Unknown]
  - Dizziness [Unknown]
  - Status epilepticus [Unknown]
  - Confusional state [Unknown]
  - Ataxia [Unknown]
